FAERS Safety Report 4944277-2 (Version None)
Quarter: 2006Q1

REPORT INFORMATION
  Report Type: 
  Country: None (occurrence: None)
  Receive Date: 20060315
  Receipt Date: 20060310
  Transmission Date: 20060701
  Serious: Yes (Other)
  Sender: FDA-Public Use
  Company Number: US-GLAXOSMITHKLINE-A0597502A

PATIENT
  Sex: Female

DRUGS (1)
  1. PAXIL [Suspect]
     Dosage: 25MG UNKNOWN
     Route: 048
     Dates: start: 20060201, end: 20060305

REACTIONS (7)
  - DYSKINESIA [None]
  - HYPERHIDROSIS [None]
  - PANIC ATTACK [None]
  - PSYCHOTIC DISORDER [None]
  - RESPIRATION ABNORMAL [None]
  - THOUGHT INSERTION [None]
  - VOMITING [None]
